FAERS Safety Report 4284623-9 (Version None)
Quarter: 2004Q1

REPORT INFORMATION
  Report Type: 
  Country: None (occurrence: None)
  Receive Date: 20040130
  Receipt Date: 20040130
  Transmission Date: 20041129
  Serious: Yes (Hospitalization)
  Sender: FDA-Public Use
  Company Number: None

PATIENT
  Age: 63 Year
  Sex: Male
  Weight: 92 kg

DRUGS (5)
  1. OSI-774 [Suspect]
     Indication: LUNG NEOPLASM MALIGNANT
     Dosage: 150 MG 1 QD PO
     Route: 048
     Dates: start: 20040104, end: 20040116
  2. PACLITAXIL [Suspect]
     Indication: LUNG NEOPLASM MALIGNANT
     Dosage: 104.5 MG 1 WK X 3 IV
     Route: 042
     Dates: start: 20031208, end: 20031222
  3. CARBOPLATIN [Suspect]
     Indication: LUNG NEOPLASM MALIGNANT
     Dosage: 229 MG 1 QWK X 3 IV
     Route: 042
     Dates: start: 20031208, end: 20031222
  4. NURONTIN [Concomitant]
  5. OXICODONE [Concomitant]

REACTIONS (2)
  - BACK PAIN [None]
  - DEHYDRATION [None]
